FAERS Safety Report 9656880 (Version 3)
Quarter: 2014Q1

REPORT INFORMATION
  Report Type: Spontaneous
  Country: JP (occurrence: None)
  Receive Date: 20131028
  Receipt Date: 20140128
  Transmission Date: 20141002
  Serious: Yes (Hospitalization, Other)
  Sender: FDA-Public Use
  Company Number: ABR_01205_2013

PATIENT
  Age: 63 Year
  Sex: Female

DRUGS (3)
  1. GLIADEL [Suspect]
     Indication: MALIGNANT GLIOMA
     Dosage: INTRACEREBRAL.
     Dates: start: 20131004, end: 20131004
  2. DEPAKENE /00228502/ [Concomitant]
  3. TEMODAL [Concomitant]

REACTIONS (2)
  - IIIrd nerve paralysis [None]
  - Neoplasm [None]
